FAERS Safety Report 8496937-7 (Version None)
Quarter: 2012Q3

REPORT INFORMATION
  Report Type: 
  Country: None (occurrence: None)
  Receive Date: 20120709
  Receipt Date: 20120702
  Transmission Date: 20120928
  Serious: Yes (Other)
  Sender: FDA-Public Use
  Company Number: US-ABBOTT-12P-163-0944031-00

PATIENT
  Sex: Female
  Weight: 49.032 kg

DRUGS (1)
  1. HUMIRA [Suspect]
     Indication: RHEUMATOID ARTHRITIS
     Route: 058
     Dates: start: 20111001

REACTIONS (9)
  - ENDODONTIC PROCEDURE [None]
  - SYSTEMIC LUPUS ERYTHEMATOSUS [None]
  - BREAST CANCER [None]
  - STOMATITIS [None]
  - SINUSITIS [None]
  - POST PROCEDURAL COMPLICATION [None]
  - HEADACHE [None]
  - ARTHRALGIA [None]
  - RASH MACULAR [None]
